FAERS Safety Report 9222080 (Version 2)
Quarter: 2013Q2

REPORT INFORMATION
  Report Type: Spontaneous
  Country: ES (occurrence: ES)
  Receive Date: 20130410
  Receipt Date: 20130418
  Transmission Date: 20140414
  Serious: Yes (Other)
  Sender: FDA-Public Use
  Company Number: ES-AMGEN-ESPSP2013024895

PATIENT
  Age: 5 Year
  Sex: Male

DRUGS (3)
  1. ENBREL [Suspect]
     Indication: JUVENILE IDIOPATHIC ARTHRITIS
     Dosage: 0.6 MG, WEEKLY
     Route: 058
     Dates: start: 201210, end: 201302
  2. ENBREL [Suspect]
     Dosage: 0.8 MG, WEEKLY
     Route: 058
  3. METHOTREXATE [Concomitant]
     Indication: JUVENILE IDIOPATHIC ARTHRITIS
     Dosage: 50 MG/2 ML AT 0.4 ML WEEKLY
     Route: 058
     Dates: start: 201207

REACTIONS (4)
  - Juvenile idiopathic arthritis [Recovered/Resolved]
  - Nightmare [Unknown]
  - Incorrect storage of drug [Unknown]
  - Drug ineffective [Recovered/Resolved]
